FAERS Safety Report 13697361 (Version 1)
Quarter: 2017Q2

REPORT INFORMATION
  Report Type: Spontaneous
  Country: US (occurrence: US)
  Receive Date: 20170628
  Receipt Date: 20170628
  Transmission Date: 20170830
  Serious: No
  Sender: FDA-Public Use
  Company Number: None

PATIENT
  Sex: Female
  Weight: 101.61 kg

DRUGS (1)
  1. COPPER IUD [Suspect]
     Active Substance: COPPER

REACTIONS (2)
  - Embedded device [None]
  - Complication of device removal [None]
